FAERS Safety Report 23931738 (Version 1)
Quarter: 2024Q2

REPORT INFORMATION
  Report Type: Other
  Country: CA (occurrence: CA)
  Receive Date: 20240603
  Receipt Date: 20240603
  Transmission Date: 20240716
  Serious: Yes (Death)
  Sender: FDA-Public Use
  Company Number: CA-WES Pharma Inc-2157688

PATIENT
  Age: 29 Year
  Sex: Male

DRUGS (9)
  1. OXYCODONE HYDROCHLORIDE [Suspect]
     Active Substance: OXYCODONE HYDROCHLORIDE
     Indication: Product used for unknown indication
     Route: 065
  2. CAFFEINE [Suspect]
     Active Substance: CAFFEINE
     Route: 065
  3. Bromazolam [Concomitant]
     Route: 065
  4. CARFENTANIL [Suspect]
     Active Substance: CARFENTANIL
     Route: 065
  5. OXYMORPHONE [Suspect]
     Active Substance: OXYMORPHONE
     Route: 065
  6. BENZOYLECGONINE [Suspect]
     Active Substance: BENZOYLECGONINE
     Route: 065
  7. COCAINE [Suspect]
     Active Substance: COCAINE
     Route: 065
  8. ALPRAZOLAM [Suspect]
     Active Substance: ALPRAZOLAM
     Route: 065
  9. COTININE [Suspect]
     Active Substance: COTININE
     Route: 065

REACTIONS (1)
  - Toxicity to various agents [Fatal]
